FAERS Safety Report 6234768-9 (Version None)
Quarter: 2009Q2

REPORT INFORMATION
  Report Type: 
  Country: None (occurrence: None)
  Receive Date: 20090618
  Receipt Date: 20090608
  Transmission Date: 20091009
  Serious: Yes (Other)
  Sender: FDA-Public Use
  Company Number: PHEH2009US05845

PATIENT
  Sex: Female

DRUGS (3)
  1. LOPRESSOR [Suspect]
  2. VALIUM [Suspect]
  3. NORVASC [Suspect]

REACTIONS (5)
  - CARDIAC OPERATION [None]
  - CHROMATURIA [None]
  - GLAUCOMA [None]
  - NEPHROLITHIASIS [None]
  - URINE ANALYSIS ABNORMAL [None]
